FAERS Safety Report 7503525-5 (Version None)
Quarter: 2011Q2

REPORT INFORMATION
  Report Type: 
  Country: None (occurrence: None)
  Receive Date: 20110525
  Receipt Date: 20110523
  Transmission Date: 20111010
  Serious: Yes (Disabling, Other)
  Sender: FDA-Public Use
  Company Number: FR-ROCHE-774131

PATIENT
  Age: 90 Year
  Sex: Female

DRUGS (3)
  1. OMEPRAZOLE [Concomitant]
  2. PREDNISOLONE [Concomitant]
     Dosage: 1 TABLET IN THE MORNING.
  3. XELODA [Suspect]
     Dosage: 4 TABLETS OF 500 MG
     Route: 065

REACTIONS (2)
  - JOINT ANKYLOSIS [None]
  - WEIGHT DECREASED [None]
